FAERS Safety Report 15903630 (Version 2)
Quarter: 2019Q1

REPORT INFORMATION
  Report Type: Spontaneous
  Country: JP (occurrence: JP)
  Receive Date: 20190203
  Receipt Date: 20190212
  Transmission Date: 20190417
  Serious: Yes (Death, Life-Threatening, Hospitalization, Other)
  Sender: FDA-Public Use
  Company Number: JP-ACCORD-104282

PATIENT
  Age: 68 Year
  Sex: Female

DRUGS (1)
  1. METHOTREXATE. [Suspect]
     Active Substance: METHOTREXATE
     Indication: RHEUMATOID ARTHRITIS
     Dosage: FOR A DURATION OF DREATER THAN 6 YEARS

REACTIONS (6)
  - Plasmablastic lymphoma [Fatal]
  - Epstein-Barr virus associated lymphoproliferative disorder [Fatal]
  - Dyspnoea [Unknown]
  - Thrombocytopenia [Unknown]
  - Stomatitis [Unknown]
  - Abdominal pain upper [Unknown]
